FAERS Safety Report 9748451 (Version 1)
Quarter: 2013Q4

REPORT INFORMATION
  Report Type: Spontaneous
  Country: NL (occurrence: None)
  Receive Date: 20131209
  Receipt Date: 20131209
  Transmission Date: 20140711
  Serious: Yes (Hospitalization)
  Sender: FDA-Public Use
  Company Number: 2013NL0466

PATIENT
  Sex: Female

DRUGS (1)
  1. NITISINONE (NITISINONE) [Suspect]
     Indication: TYROSINAEMIA

REACTIONS (2)
  - Liver transplant [None]
  - Amino acid level increased [None]
